FAERS Safety Report 15653646 (Version 1)
Quarter: 2018Q4

REPORT INFORMATION
  Report Type: Spontaneous
  Country: US (occurrence: US)
  Receive Date: 20181122
  Receipt Date: 20181122
  Transmission Date: 20190205
  Serious: Yes (Other)
  Sender: FDA-Public Use
  Company Number: None

PATIENT
  Age: 45 Year
  Sex: Female
  Weight: 90.9 kg

DRUGS (2)
  1. ALBUTEROL NEBULIZER [Suspect]
     Active Substance: ALBUTEROL
     Indication: ASTHMA
     Route: 055
     Dates: start: 20170623, end: 20180625
  2. ALBUTEROL INHALATION SOLUTION [Concomitant]
     Active Substance: ALBUTEROL
     Dates: start: 20170623, end: 20170625

REACTIONS (1)
  - Tachycardia [None]

NARRATIVE: CASE EVENT DATE: 20170623
